FAERS Safety Report 4471447-2 (Version None)
Quarter: 2004Q4

REPORT INFORMATION
  Report Type: 
  Country: None (occurrence: None)
  Receive Date: 20041006
  Receipt Date: 20041006
  Transmission Date: 20050328
  Serious: Yes (Death)
  Sender: FDA-Public Use
  Company Number: None

PATIENT
  Age: 48 Year
  Sex: Male
  Weight: 52.6173 kg

DRUGS (1)
  1. CLOZAPINE [Suspect]
     Indication: MEDICATION ERROR
     Dates: start: 20040602, end: 20040602

REACTIONS (4)
  - ARRHYTHMIA [None]
  - CIRCULATORY COLLAPSE [None]
  - MEDICATION ERROR [None]
  - MITRAL VALVE PROLAPSE [None]
